FAERS Safety Report 7319061-5 (Version None)
Quarter: 2011Q1

REPORT INFORMATION
  Report Type: 
  Country: None (occurrence: None)
  Receive Date: 20110228
  Receipt Date: 20110224
  Transmission Date: 20110831
  Serious: Yes (Disabling, Other)
  Sender: FDA-Public Use
  Company Number: US-PFIZER INC-2011041146

PATIENT
  Sex: Female
  Weight: 77.098 kg

DRUGS (6)
  1. LISINOPRIL [Concomitant]
     Indication: HYPERTENSION
     Dosage: UNK
  2. INSULIN DETEMIR [Concomitant]
     Indication: DIABETES MELLITUS
     Dosage: UNK
  3. CELEBREX [Suspect]
     Indication: TOOTHACHE
     Dosage: UNK
     Route: 048
     Dates: start: 20110205, end: 20110206
  4. TERAZOSIN [Concomitant]
     Indication: HYPERTENSION
     Dosage: UNK
  5. FUROSEMIDE [Concomitant]
     Indication: FLUID RETENTION
     Dosage: UNK
  6. LEVOTHYROXINE [Concomitant]
     Indication: HYPOTHYROIDISM
     Dosage: UNK

REACTIONS (5)
  - ACTIVITIES OF DAILY LIVING IMPAIRED [None]
  - DIZZINESS [None]
  - CEREBROVASCULAR ACCIDENT [None]
  - DISORIENTATION [None]
  - HEADACHE [None]
